FAERS Safety Report 19150900 (Version 1)
Quarter: 2021Q2

REPORT INFORMATION
  Report Type: Spontaneous
  Country: CA (occurrence: CA)
  Receive Date: 20210419
  Receipt Date: 20210419
  Transmission Date: 20210717
  Serious: Yes (Hospitalization, Other)
  Sender: FDA-Public Use
  Company Number: CA-DRREDDYS-USA/CAN/20/0125443

PATIENT
  Age: 86 Year
  Sex: Female

DRUGS (11)
  1. FLUOXETINE 40MG [Suspect]
     Active Substance: FLUOXETINE HYDROCHLORIDE
     Indication: AFFECT LABILITY
     Route: 065
  2. MIRTAZAPINE. [Concomitant]
     Active Substance: MIRTAZAPINE
     Indication: AFFECT LABILITY
  3. SERTRALINE [Concomitant]
     Active Substance: SERTRALINE HYDROCHLORIDE
     Indication: AFFECT LABILITY
     Route: 065
  4. PAROXETINE. [Concomitant]
     Active Substance: PAROXETINE
     Indication: AFFECT LABILITY
     Route: 065
  5. CARBIDOPA AND LEVODOPA [Concomitant]
     Active Substance: CARBIDOPA\LEVODOPA
     Indication: PARKINSONISM
  6. AMLODIPINE [Concomitant]
     Active Substance: AMLODIPINE BESYLATE
     Indication: HYPERTENSION
     Route: 065
  7. QUINIDINE 10 MG, DEXTROMETHORPHAN 20 MG [Concomitant]
  8. QUETIAPINE. [Concomitant]
     Active Substance: QUETIAPINE
     Indication: DEMENTIA ALZHEIMER^S TYPE
     Dosage: AT BEDTIME
     Route: 065
  9. OXAZEPAM. [Concomitant]
     Active Substance: OXAZEPAM
     Indication: AFFECT LABILITY
     Route: 065
  10. QUINIDINE 10 MG, DEXTROMETHORPHAN 20 MG [Concomitant]
     Indication: AFFECT LABILITY
  11. CALCIUM 500 MG VITAMIN D 400 [Concomitant]
     Indication: OSTEOPOROSIS
     Route: 065

REACTIONS (3)
  - Akathisia [Unknown]
  - Off label use [Unknown]
  - Drug ineffective [Recovering/Resolving]
